FAERS Safety Report 18774770 (Version 1)
Quarter: 2021Q1

REPORT INFORMATION
  Report Type: Spontaneous
  Country: CA (occurrence: CA)
  Receive Date: 20210122
  Receipt Date: 20210122
  Transmission Date: 20210419
  Serious: Yes (Other)
  Sender: FDA-Public Use
  Company Number: CA-PURDUE-USA-2020-0197457

PATIENT
  Sex: Male

DRUGS (2)
  1. OXYCONTIN [Suspect]
     Active Substance: OXYCODONE HYDROCHLORIDE
     Indication: PRODUCT USED FOR UNKNOWN INDICATION
     Dosage: UNK
     Route: 048
  2. HYDROMORPHONE HYDROCHLORIDE. [Suspect]
     Active Substance: HYDROMORPHONE HYDROCHLORIDE
     Indication: PRODUCT USED FOR UNKNOWN INDICATION
     Dosage: UNK
     Route: 048

REACTIONS (12)
  - Loss of consciousness [Unknown]
  - Drug dependence [Unknown]
  - Hyperhidrosis [Unknown]
  - Mood swings [Unknown]
  - Dyspnoea [Unknown]
  - Hot flush [Unknown]
  - Dizziness [Unknown]
  - Androgen deficiency [Unknown]
  - Constipation [Unknown]
  - Amnesia [Unknown]
  - Pruritus [Unknown]
  - Rash [Unknown]
